APPROVED DRUG PRODUCT: LABETALOL HYDROCHLORIDE
Active Ingredient: LABETALOL HYDROCHLORIDE
Strength: 100MG
Dosage Form/Route: TABLET;ORAL
Application: A212990 | Product #001 | TE Code: AB
Applicant: EPIC PHARMA LLC
Approved: Sep 30, 2020 | RLD: No | RS: No | Type: RX